FAERS Safety Report 9470403 (Version 1)
Quarter: 2013Q3

REPORT INFORMATION
  Report Type: Report from Study
  Country: IL (occurrence: IL)
  Receive Date: 20130822
  Receipt Date: 20130822
  Transmission Date: 20140515
  Serious: Yes (Hospitalization)
  Sender: FDA-Public Use
  Company Number: PHHY2013IL090653

PATIENT
  Sex: Female

DRUGS (3)
  1. GILENYA [Suspect]
     Indication: MULTIPLE SCLEROSIS
     Dosage: 0.5 MG, UNK
     Route: 048
     Dates: start: 20130711, end: 201308
  2. GILENYA [Suspect]
     Dosage: 0.5 MG, UNK
     Route: 048
     Dates: start: 20130820
  3. SATIVEX [Suspect]
     Route: 002
     Dates: start: 201307

REACTIONS (4)
  - Psychotic disorder [Recovering/Resolving]
  - Confusional state [Recovered/Resolved]
  - Asthenia [Recovering/Resolving]
  - Overdose [Unknown]
